FAERS Safety Report 6064048-6 (Version None)
Quarter: 2009Q1

REPORT INFORMATION
  Report Type: 
  Country: None (occurrence: None)
  Receive Date: 20090204
  Receipt Date: 20090129
  Transmission Date: 20090719
  Serious: Yes (Death)
  Sender: FDA-Public Use
  Company Number: JP-WYE-H07409508

PATIENT
  Sex: Female

DRUGS (11)
  1. ANCARON [Suspect]
     Indication: ATRIAL FIBRILLATION
     Route: 042
     Dates: start: 20080615, end: 20080615
  2. ANCARON [Suspect]
     Route: 042
     Dates: start: 20080615, end: 20080615
  3. ANCARON [Suspect]
     Route: 042
     Dates: start: 20080615, end: 20080617
  4. ASPIRIN [Concomitant]
     Dosage: 100 MG (FREQUENCY UNSPECIFIED)
     Route: 048
     Dates: start: 20080613, end: 20080619
  5. MEVALOTIN [Concomitant]
     Dosage: 10 MG (FREQUENCY UNSPECIFIED)
     Route: 048
     Dates: start: 20080613, end: 20080619
  6. ANCARON [Concomitant]
     Route: 048
     Dates: start: 20080616, end: 20080619
  7. TEGRETOL [Concomitant]
     Indication: EPILEPSY
     Route: 048
     Dates: start: 20080613
  8. RIVOTRIL [Concomitant]
     Indication: EPILEPSY
     Dosage: 1 MG (FREQUENCY UNSPECIFIED)
     Route: 048
     Dates: start: 20080613, end: 20080619
  9. GASTER [Concomitant]
     Indication: HAEMORRHAGE PROPHYLAXIS
     Route: 048
     Dates: start: 20080613, end: 20080619
  10. ENALAPRIL MALEATE [Concomitant]
     Indication: HYPERTENSION
     Dosage: 5 MG (FREQUENCY UNSPECIFIED)
     Route: 048
     Dates: start: 20080613, end: 20080619
  11. AROMASIN [Concomitant]
     Indication: BREAST CANCER
     Dosage: 25 MG (FREQUENCY UNSPECIFIED)
     Route: 048
     Dates: start: 20080613, end: 20080619

REACTIONS (1)
  - DRUG INEFFECTIVE [None]
